FAERS Safety Report 7015025-X (Version None)
Quarter: 2010Q3

REPORT INFORMATION
  Report Type: 
  Country: None (occurrence: None)
  Receive Date: 20100927
  Receipt Date: 20090929
  Transmission Date: 20110219
  Serious: No
  Sender: FDA-Public Use
  Company Number: US-ASTRAZENECA-2009SE16739

PATIENT
  Age: 79 Year
  Sex: Female

DRUGS (1)
  1. ARIMIDEX [Suspect]
     Indication: BREAST CANCER RECURRENT
     Route: 048
     Dates: end: 20090922

REACTIONS (5)
  - ABNORMAL LOSS OF WEIGHT [None]
  - ARTHRALGIA [None]
  - DEPRESSION [None]
  - MACULAR DEGENERATION [None]
  - WHITE BLOOD CELL COUNT INCREASED [None]
